FAERS Safety Report 7815044-7 (Version None)
Quarter: 2011Q4

REPORT INFORMATION
  Report Type: 
  Country: None (occurrence: None)
  Receive Date: 20111014
  Receipt Date: 20111003
  Transmission Date: 20120403
  Serious: Yes (Hospitalization)
  Sender: FDA-Public Use
  Company Number: CA-JNJFOC-20111005494

PATIENT
  Sex: Male
  Weight: 71.4 kg

DRUGS (5)
  1. REMICADE [Suspect]
     Dosage: 4TH DOSE
     Route: 042
     Dates: start: 20110815
  2. HUMIRA [Concomitant]
  3. REMICADE [Suspect]
     Route: 042
     Dates: start: 20110531
  4. REMICADE [Suspect]
     Indication: COLITIS ULCERATIVE
     Route: 042
  5. REMICADE [Suspect]
     Route: 042

REACTIONS (2)
  - ADVERSE EVENT [None]
  - HOSPITALISATION [None]
